FAERS Safety Report 7935798-9 (Version None)
Quarter: 2011Q4

REPORT INFORMATION
  Report Type: 
  Country: None (occurrence: None)
  Receive Date: 20111123
  Receipt Date: 20111115
  Transmission Date: 20120403
  Serious: Yes (Other)
  Sender: FDA-Public Use
  Company Number: PHHY2011US34262

PATIENT
  Sex: Female

DRUGS (5)
  1. GILENYA [Suspect]
     Indication: MULTIPLE SCLEROSIS
     Dosage: 0.5 MG, QD
     Route: 048
     Dates: start: 20110107
  2. CALCIUM [Concomitant]
     Dosage: UNK UKN, UNK
  3. MULTI-VITAMINS [Concomitant]
     Dosage: UNK UKN, UNK
  4. PROBIOTICS (MICROORGANISMS W/PROBIOTIC ACTION) [Concomitant]
     Dosage: UNK UKN, UNK
  5. VITAMIN D [Concomitant]
     Dosage: 800 IU, UNK

REACTIONS (4)
  - TOOTH DISORDER [None]
  - DENTAL CARIES [None]
  - RASH [None]
  - HERPES ZOSTER [None]
